FAERS Safety Report 12266189 (Version 1)
Quarter: 2016Q2

REPORT INFORMATION
  Report Type: Spontaneous
  Country: US (occurrence: None)
  Receive Date: 20160413
  Receipt Date: 20160413
  Transmission Date: 20160815
  Serious: Yes (Hospitalization, Disabling)
  Sender: FDA-Public Use
  Company Number: None

PATIENT
  Age: 38 Year
  Sex: Female
  Weight: 65.77 kg

DRUGS (11)
  1. MELATONIN [Concomitant]
     Active Substance: MELATONIN
  2. CLOZAPINE. [Suspect]
     Active Substance: CLOZAPINE
     Indication: SCHIZOAFFECTIVE DISORDER
     Route: 048
  3. KOMBUCHA TEA [Concomitant]
  4. L-THEANINE [Concomitant]
     Active Substance: DIETARY SUPPLEMENT
  5. DIGESTIVE ENZYMES [Concomitant]
     Active Substance: UNSPECIFIED INGREDIENT
  6. FOLATE [Concomitant]
     Active Substance: FOLATE SODIUM
  7. PROBIOTICS [Concomitant]
     Active Substance: PROBIOTICS NOS
  8. TUMERIC [Concomitant]
     Active Substance: TURMERIC
  9. PSYLLIUM HUSK [Concomitant]
     Active Substance: PSYLLIUM HUSK
  10. MULTI VITAMINS [Concomitant]
  11. CHINESE HERBS [Concomitant]
     Active Substance: HERBALS

REACTIONS (8)
  - Fatigue [None]
  - Back pain [None]
  - Agranulocytosis [None]
  - Influenza like illness [None]
  - Pain in extremity [None]
  - Nightmare [None]
  - Quality of life decreased [None]
  - Diarrhoea [None]
